FAERS Safety Report 9564776 (Version 1)
Quarter: 2013Q3

REPORT INFORMATION
  Report Type: Report from Study
  Country: US (occurrence: US)
  Receive Date: 20130930
  Receipt Date: 20130930
  Transmission Date: 20140515
  Serious: Yes (Other)
  Sender: FDA-Public Use
  Company Number: PHEH2013US020255

PATIENT
  Sex: Female

DRUGS (1)
  1. AFINITOR [Suspect]
     Dosage: 2.5 MG, QD
     Route: 048
     Dates: end: 201305

REACTIONS (1)
  - Cerebrovascular accident [Unknown]
